FAERS Safety Report 12235392 (Version 1)
Quarter: 2016Q2

REPORT INFORMATION
  Report Type: Spontaneous
  Country: CA (occurrence: CA)
  Receive Date: 20160404
  Receipt Date: 20160404
  Transmission Date: 20160815
  Serious: Yes (Other)
  Sender: FDA-Public Use
  Company Number: CA-APOTEX-2014AP000071

PATIENT
  Age: 6 Decade
  Sex: Male

DRUGS (5)
  1. FLUPENTIXOL [Suspect]
     Active Substance: FLUPENTIXOL
     Indication: SCHIZOPHRENIA
     Route: 030
     Dates: start: 2006
  2. APO-HALOPERIDOL [Suspect]
     Active Substance: HALOPERIDOL
     Indication: SCHIZOPHRENIA
     Dosage: 5 MG/DAY
     Route: 065
     Dates: start: 2004
  3. APO-OLANZAPINE ODT [Suspect]
     Active Substance: OLANZAPINE
     Indication: SCHIZOPHRENIA
     Dosage: 10 MG/DAY
     Route: 065
     Dates: start: 2004
  4. APO-FLUPHENAZINE INJECTABLE [Suspect]
     Active Substance: FLUPHENAZINE HYDROCHLORIDE
     Indication: SCHIZOPHRENIA
     Dosage: 50 MG, Q.O.WK.
     Route: 030
  5. INVEGA [Suspect]
     Active Substance: PALIPERIDONE
     Indication: SCHIZOPHRENIA
     Route: 065
     Dates: start: 2012

REACTIONS (2)
  - Psychotic disorder [None]
  - Agranulocytosis [Unknown]

NARRATIVE: CASE EVENT DATE: 2003
